FAERS Safety Report 9478929 (Version 1)
Quarter: 2013Q3

REPORT INFORMATION
  Report Type: Spontaneous
  Country: PL (occurrence: None)
  Receive Date: 20130822
  Receipt Date: 20130822
  Transmission Date: 20140515
  Serious: Yes (Other)
  Sender: FDA-Public Use
  Company Number: 1853556

PATIENT
  Sex: 0

DRUGS (3)
  1. GEMCITABINE HYDROCHLORIDE [Suspect]
     Indication: BLADDER CANCER
  2. PLATINUM COMPOUNDS [Suspect]
     Indication: BLADDER CANCER
  3. THERAPEUTIC RADIOPHARMACEUTICALS [Suspect]
     Indication: BLADDER CANCER
     Dosage: 1.8 GY DAILY, UNKNOWN

REACTIONS (1)
  - Toxicity to various agents [None]
